FAERS Safety Report 9538925 (Version 1)
Quarter: 2013Q3

REPORT INFORMATION
  Report Type: Spontaneous
  Country: IT (occurrence: IT)
  Receive Date: 20130920
  Receipt Date: 20130920
  Transmission Date: 20140515
  Serious: Yes (Other)
  Sender: FDA-Public Use
  Company Number: IT-JNJFOC-20130905916

PATIENT
  Age: 48 Year
  Sex: Male

DRUGS (5)
  1. ETRAVIRINE [Suspect]
     Indication: PATHOGEN RESISTANCE
     Route: 065
  2. BISOPROLOL [Concomitant]
     Route: 065
  3. RALTEGRAVIR [Concomitant]
     Indication: PATHOGEN RESISTANCE
     Route: 065
  4. DARUNAVIR [Concomitant]
     Indication: PATHOGEN RESISTANCE
     Route: 065
  5. EMTRICITABINE W/TENOFOVIR [Concomitant]
     Indication: PATHOGEN RESISTANCE
     Route: 065

REACTIONS (6)
  - Myopathy [Recovered/Resolved]
  - Alanine aminotransferase increased [Recovered/Resolved]
  - Arthralgia [Recovered/Resolved]
  - Joint stiffness [Recovered/Resolved]
  - Aspartate aminotransferase increased [Recovered/Resolved]
  - Local swelling [Recovered/Resolved]
